FAERS Safety Report 6152352-2 (Version None)
Quarter: 2009Q2

REPORT INFORMATION
  Report Type: 
  Country: None (occurrence: None)
  Receive Date: 20090413
  Receipt Date: 20090406
  Transmission Date: 20091009
  Serious: Yes (Other)
  Sender: FDA-Public Use
  Company Number: FR-JNJFOC-20090401862

PATIENT
  Sex: Female

DRUGS (1)
  1. HALDOL DECANOAS [Suspect]
     Indication: SCHIZOPHRENIA
     Dosage: 2 TO 3 AMP EVERY 4 WEEKS
     Route: 030

REACTIONS (1)
  - VENOUS THROMBOSIS LIMB [None]
